FAERS Safety Report 18725082 (Version 1)
Quarter: 2021Q1

REPORT INFORMATION
  Report Type: Spontaneous
  Country: US (occurrence: US)
  Receive Date: 20210111
  Receipt Date: 20210111
  Transmission Date: 20210419
  Serious: Yes (Hospitalization, Other)
  Sender: FDA-Public Use
  Company Number: None

PATIENT
  Age: 73 Year
  Sex: Female
  Weight: 51.75 kg

DRUGS (1)
  1. ZARXIO [Suspect]
     Active Substance: FILGRASTIM-SNDZ
     Indication: WHITE BLOOD CELL COUNT DECREASED
     Dosage: ?          QUANTITY:1 INJECTION(S);?
     Route: 042

REACTIONS (4)
  - Nausea [None]
  - Oxygen saturation decreased [None]
  - Hypertension [None]
  - Dizziness [None]

NARRATIVE: CASE EVENT DATE: 20191218
